FAERS Safety Report 9503497 (Version 1)
Quarter: 2013Q1

REPORT INFORMATION
  Report Type: Spontaneous
  Country: US (occurrence: None)
  Receive Date: 20130226
  Receipt Date: 20130226
  Transmission Date: 20140127
  Serious: Yes (Other)
  Sender: FDA-Public Use
  Company Number: PHEH2012US015438

PATIENT
  Age: 32 Year
  Sex: Female

DRUGS (3)
  1. TOBI [Suspect]
     Indication: CYSTIC FIBROSIS
     Route: 055
     Dates: start: 20120808, end: 20120815
  2. PULMOZYME (DORNASE ALFA) [Concomitant]
  3. NACL (SODIUM CHLORDE) [Concomitant]

REACTIONS (2)
  - Tinnitus [None]
  - Malaise [None]
